FAERS Safety Report 8477147-6 (Version None)
Quarter: 2012Q2

REPORT INFORMATION
  Report Type: 
  Country: None (occurrence: None)
  Receive Date: 20120625
  Receipt Date: 20120625
  Transmission Date: 20120825
  Serious: Yes (Hospitalization)
  Sender: FDA-Public Use
  Company Number: None

PATIENT
  Sex: Male
  Weight: 103.6 kg

DRUGS (1)
  1. PEG-L-ASPARAGINASE (K-H) [Suspect]
     Dosage: 2500 IU
     Route: 015

REACTIONS (1)
  - BLOOD TRIGLYCERIDES INCREASED [None]
